FAERS Safety Report 20188886 (Version 1)
Quarter: 2021Q4

REPORT INFORMATION
  Report Type: Spontaneous
  Country: US (occurrence: US)
  Receive Date: 20211215
  Receipt Date: 20211215
  Transmission Date: 20220303
  Serious: No
  Sender: FDA-Public Use
  Company Number: US-drreddys-SPO/USA/21/0144668

PATIENT
  Age: 36 Year
  Sex: Female

DRUGS (1)
  1. ZENATANE [Suspect]
     Active Substance: ISOTRETINOIN
     Indication: Product used for unknown indication
     Dosage: RMA ISSUE DATE:5 OCTOBER 2021 7:26:44 PM, 5 NOVEMBER 2021 11:02:39 AM

REACTIONS (1)
  - Hepatic enzyme increased [Unknown]
